FAERS Safety Report 18036182 (Version 1)
Quarter: 2020Q3

REPORT INFORMATION
  Report Type: Spontaneous
  Country: US (occurrence: US)
  Receive Date: 20200717
  Receipt Date: 20200717
  Transmission Date: 20201103
  Serious: No
  Sender: FDA-Public Use
  Company Number: None

PATIENT
  Age: 64 Year
  Sex: Male
  Weight: 42.9 kg

DRUGS (11)
  1. ONE DAILY COMPLETE FOR MEN [Concomitant]
  2. LISINOPRIL. [Concomitant]
     Active Substance: LISINOPRIL
  3. ADVIL [Concomitant]
     Active Substance: IBUPROFEN
  4. METFORMIN [Concomitant]
     Active Substance: METFORMIN HYDROCHLORIDE
  5. VITAMIN D3 [Concomitant]
     Active Substance: CHOLECALCIFEROL
  6. TYLENOL [Concomitant]
     Active Substance: ACETAMINOPHEN
  7. BOSULIF [Suspect]
     Active Substance: BOSUTINIB MONOHYDRATE
     Indication: CHRONIC MYELOID LEUKAEMIA
     Route: 048
     Dates: start: 20181213, end: 20200717
  8. GABAPENTIN. [Concomitant]
     Active Substance: GABAPENTIN
  9. LIPITOR [Concomitant]
     Active Substance: ATORVASTATIN CALCIUM
  10. HYDROXYZINE [Concomitant]
     Active Substance: HYDROXYZINE HYDROCHLORIDE
  11. METOPROLOL TARTRATE. [Concomitant]
     Active Substance: METOPROLOL TARTRATE

REACTIONS (2)
  - Small cell lung cancer extensive stage [None]
  - Disease progression [None]

NARRATIVE: CASE EVENT DATE: 20200717
